FAERS Safety Report 8389620-X (Version None)
Quarter: 2012Q2

REPORT INFORMATION
  Report Type: 
  Country: None (occurrence: None)
  Receive Date: 20120528
  Receipt Date: 20120522
  Transmission Date: 20120825
  Serious: Yes (Death)
  Sender: FDA-Public Use
  Company Number: PL-ROCHE-1071484

PATIENT
  Sex: Male

DRUGS (1)
  1. PEGASYS [Suspect]
     Indication: HIV INFECTION
     Dosage: DOSE: 180
     Route: 058
     Dates: start: 20080929

REACTIONS (1)
  - MYOCARDIAL INFARCTION [None]
